FAERS Safety Report 6718245-4 (Version None)
Quarter: 2010Q2

REPORT INFORMATION
  Report Type: 
  Country: None (occurrence: None)
  Receive Date: 20100510
  Receipt Date: 20100429
  Transmission Date: 20101027
  Serious: Yes (Hospitalization)
  Sender: FDA-Public Use
  Company Number: US-BAXTER-2010BH011886

PATIENT
  Age: 70 Year
  Sex: Female

DRUGS (2)
  1. DIANEAL [Suspect]
     Indication: PERITONEAL DIALYSIS
     Route: 033
     Dates: start: 20100401, end: 20100401
  2. DIANEAL [Suspect]
     Route: 033
     Dates: start: 20100401

REACTIONS (2)
  - CHEST PAIN [None]
  - DYSPNOEA [None]
